FAERS Safety Report 8183086-0 (Version None)
Quarter: 2012Q1

REPORT INFORMATION
  Report Type: 
  Country: None (occurrence: None)
  Receive Date: 20120126
  Receipt Date: 20111123
  Transmission Date: 20120608
  Serious: Yes (Other)
  Sender: FDA-Public Use
  Company Number: PHEH2011US010205

PATIENT
  Age: 21 Year
  Sex: Female

DRUGS (13)
  1. KLONOPIN [Concomitant]
  2. LAMICTAL [Concomitant]
  3. DOXEPIN HCL [Concomitant]
  4. VITAMIN B12 [Concomitant]
  5. TOPAMAX [Concomitant]
  6. PROGESTOGENS [Concomitant]
  7. VITAMIN D [Concomitant]
  8. AFINITOR [Suspect]
     Indication: TUBEROUS SCLEROSIS
     Dosage: 10 MG, DAILY, ORAL
     Dates: start: 20111014
  9. POTASSIUM CHLORIDE [Concomitant]
  10. MAGNESIUM (MAGNESIUM) [Concomitant]
  11. CALCIUM CARBONATE [Concomitant]
  12. RUFINAMIDE (RUFINAMIDE) [Concomitant]
  13. OTHER MINERAL SUPPLEMENTS [Concomitant]

REACTIONS (2)
  - MOUNTAIN SICKNESS ACUTE [None]
  - URINARY TRACT INFECTION [None]
